FAERS Safety Report 10355136 (Version 1)
Quarter: 2014Q3

REPORT INFORMATION
  Report Type: Spontaneous
  Country: JP (occurrence: JP)
  Receive Date: 20140731
  Receipt Date: 20140731
  Transmission Date: 20150326
  Serious: Yes (Other)
  Sender: FDA-Public Use
  Company Number: PHHY2011JP121213

PATIENT

DRUGS (3)
  1. SUNITINIB [Concomitant]
     Active Substance: SUNITINIB
     Dosage: 12.5 MG, UNK
     Dates: start: 201111
  2. AFINITOR [Suspect]
     Active Substance: EVEROLIMUS
     Dosage: 20 MG, UNK
  3. SUNITINIB [Concomitant]
     Active Substance: SUNITINIB
     Dosage: UNK

REACTIONS (6)
  - Pleural effusion [Recovering/Resolving]
  - Metastasis [Recovering/Resolving]
  - Platelet count decreased [Recovering/Resolving]
  - Blood pressure increased [Recovering/Resolving]
  - Cardiac failure [Recovering/Resolving]
  - Mouth ulceration [Recovering/Resolving]
